FAERS Safety Report 9296186 (Version 3)
Quarter: 2014Q1

REPORT INFORMATION
  Report Type: Spontaneous
  Country: US (occurrence: US)
  Receive Date: 20130517
  Receipt Date: 20140307
  Transmission Date: 20141002
  Serious: Yes (Hospitalization)
  Sender: FDA-Public Use
  Company Number: US-GLAXOSMITHKLINE-A1023560A

PATIENT
  Age: 83 Year
  Sex: Female

DRUGS (11)
  1. ADVAIR [Suspect]
     Indication: CHRONIC OBSTRUCTIVE PULMONARY DISEASE
     Dosage: 1PUFF TWICE PER DAY
     Route: 055
     Dates: start: 201201
  2. COUMADIN [Concomitant]
  3. THYROID MEDICATION [Concomitant]
  4. UNKNOWN STOMACH MEDICATION [Concomitant]
  5. BABY ASPIRIN [Concomitant]
  6. LABETALOL [Concomitant]
  7. LEVOTHYROXIN [Concomitant]
  8. PANTOPRAZOLE [Concomitant]
  9. DIURETIC [Concomitant]
  10. POTASSIUM [Concomitant]
  11. WARFARIN [Concomitant]

REACTIONS (8)
  - Anaemia [Not Recovered/Not Resolved]
  - Fatigue [Not Recovered/Not Resolved]
  - Feeling cold [Not Recovered/Not Resolved]
  - Dysphonia [Not Recovered/Not Resolved]
  - Cough [Not Recovered/Not Resolved]
  - Transfusion [Unknown]
  - Arthralgia [Not Recovered/Not Resolved]
  - Secretion discharge [Not Recovered/Not Resolved]
